FAERS Safety Report 15210384 (Version 2)
Quarter: 2020Q4

REPORT INFORMATION
  Report Type: Spontaneous
  Country: US (occurrence: US)
  Receive Date: 20180727
  Receipt Date: 20201029
  Transmission Date: 20210113
  Serious: Yes (Other)
  Sender: FDA-Public Use
  Company Number: US-SA-2017SA251704

PATIENT

DRUGS (14)
  1. NEOSAR [Concomitant]
     Active Substance: CYCLOPHOSPHAMIDE
     Indication: BREAST CANCER FEMALE
     Route: 065
  2. CYCLOPHOSPHAMIDE. [Concomitant]
     Active Substance: CYCLOPHOSPHAMIDE
     Indication: BREAST CANCER FEMALE
     Route: 065
  3. METFORMIN [Concomitant]
     Active Substance: METFORMIN HYDROCHLORIDE
  4. SODIUM CHLORIDE. [Concomitant]
     Active Substance: SODIUM CHLORIDE
     Dosage: 250 ML
  5. ATACAND [Concomitant]
     Active Substance: CANDESARTAN CILEXETIL
  6. LIPITOR [Concomitant]
     Active Substance: ATORVASTATIN CALCIUM
  7. GLYBURIDE. [Concomitant]
     Active Substance: GLYBURIDE
     Route: 065
  8. ACTINOMYCIN C [Concomitant]
     Active Substance: CACTINOMYCIN
     Indication: BREAST CANCER FEMALE
  9. TAXOTERE [Suspect]
     Active Substance: DOCETAXEL
     Dosage: 100 MG/M2, QCY
     Route: 065
     Dates: start: 20030522, end: 20030522
  10. ADRIAMYCIN [Concomitant]
     Active Substance: DOXORUBICIN HYDROCHLORIDE
     Route: 065
  11. NORVASC [Concomitant]
     Active Substance: AMLODIPINE BESYLATE
  12. TAXOTERE [Suspect]
     Active Substance: DOCETAXEL
     Indication: BREAST CANCER FEMALE
     Dosage: 100 MG/M2, QCY
     Route: 065
     Dates: start: 20030403, end: 20030403
  13. DOXORUBICIN [Concomitant]
     Active Substance: DOXORUBICIN
     Indication: BREAST CANCER FEMALE
     Route: 065
  14. ASPIRINE [Concomitant]
     Active Substance: ASPIRIN

REACTIONS (6)
  - Anxiety [Unknown]
  - Impaired quality of life [Unknown]
  - Alopecia [Not Recovered/Not Resolved]
  - Psychological trauma [Unknown]
  - Emotional distress [Unknown]
  - Pain [Unknown]
